FAERS Safety Report 11722790 (Version 1)
Quarter: 2015Q4

REPORT INFORMATION
  Report Type: Spontaneous
  Country: GB (occurrence: GB)
  Receive Date: 20151111
  Receipt Date: 20151111
  Transmission Date: 20160304
  Serious: Yes (Disabling, Other)
  Sender: FDA-Public Use
  Company Number: GB-ASTRAZENECA-2015SF07016

PATIENT
  Age: 54 Year
  Sex: Male
  Weight: 121 kg

DRUGS (8)
  1. CETIRIZINE [Concomitant]
     Active Substance: CETIRIZINE HYDROCHLORIDE
  2. DAPAGLIFLOZIN [Suspect]
     Active Substance: DAPAGLIFLOZIN
     Indication: DIABETES MELLITUS
     Route: 048
     Dates: start: 20151002, end: 20151012
  3. SIMVASTATIN. [Concomitant]
     Active Substance: SIMVASTATIN
     Route: 048
     Dates: start: 20111031
  4. BISOPROLOL [Concomitant]
     Active Substance: BISOPROLOL
     Indication: LEFT VENTRICULAR FAILURE
     Route: 048
     Dates: start: 20111020
  5. OMEPRAZOLE. [Concomitant]
     Active Substance: OMEPRAZOLE
  6. METFORMIN [Concomitant]
     Active Substance: METFORMIN HYDROCHLORIDE
     Indication: DIABETES MELLITUS
     Route: 048
     Dates: start: 20140606
  7. ASPIRIN. [Concomitant]
     Active Substance: ASPIRIN
  8. IRBESARTAN. [Concomitant]
     Active Substance: IRBESARTAN
     Indication: HYPERTENSION
     Route: 048
     Dates: start: 20140430

REACTIONS (2)
  - Hypertension [Recovered/Resolved]
  - Headache [Recovered/Resolved]
